FAERS Safety Report 24269195 (Version 2)
Quarter: 2024Q4

REPORT INFORMATION
  Report Type: Report from Study
  Country: US (occurrence: US)
  Receive Date: 20240830
  Receipt Date: 20241120
  Transmission Date: 20250115
  Serious: Yes (Other)
  Sender: ABBVIE
  Company Number: US-ABBVIE-5894271

PATIENT
  Age: 85 Year
  Sex: Female
  Weight: 81 kg

DRUGS (1)
  1. LINZESS [Suspect]
     Active Substance: LINACLOTIDE
     Indication: Product used for unknown indication
     Dosage: TAKEN 2 LINZESS DAILY
     Route: 065

REACTIONS (9)
  - Wrist fracture [Recovering/Resolving]
  - Incorrect dose administered [Recovered/Resolved]
  - Post procedural constipation [Not Recovered/Not Resolved]
  - Fall [Unknown]
  - Appendicitis perforated [Unknown]
  - Spinal fusion surgery [Unknown]
  - Spinal fusion surgery [Unknown]
  - Lordosis [Unknown]
  - Cerebrospinal fluid leakage [Unknown]

NARRATIVE: CASE EVENT DATE: 20010101
